FAERS Safety Report 5308972-8 (Version None)
Quarter: 2007Q2

REPORT INFORMATION
  Report Type: 
  Country: None (occurrence: None)
  Receive Date: 20070426
  Receipt Date: 20070416
  Transmission Date: 20071010
  Serious: Yes (Hospitalization)
  Sender: FDA-Public Use
  Company Number: FR-PFIZER INC-2007030154

PATIENT
  Age: 86 Year
  Sex: Male
  Weight: 70 kg

DRUGS (6)
  1. ALDACTONE [Suspect]
     Route: 048
     Dates: end: 20070317
  2. TRANDOLAPRIL [Suspect]
  3. AMIODARONE HYDROCHLORIDE [Concomitant]
  4. ACENOCOUMAROL [Concomitant]
     Route: 048
     Dates: end: 20070317
  5. CARVEDILOL [Concomitant]
  6. FUROSEMIDE [Concomitant]

REACTIONS (3)
  - HYPERKALAEMIA [None]
  - HYPERURICAEMIA [None]
  - RENAL FAILURE ACUTE [None]
